FAERS Safety Report 12991643 (Version 1)
Quarter: 2016Q4

REPORT INFORMATION
  Report Type: Spontaneous
  Country: BR (occurrence: BR)
  Receive Date: 20161201
  Receipt Date: 20161201
  Transmission Date: 20170207
  Serious: Yes (Other)
  Sender: FDA-Public Use
  Company Number: BR-TEVA-715439ISR

PATIENT
  Sex: Female

DRUGS (1)
  1. ACTONEL [Suspect]
     Active Substance: RISEDRONATE SODIUM
     Dosage: 5 MILLIGRAM DAILY;
     Route: 048

REACTIONS (5)
  - Respiratory failure [Unknown]
  - Feeling abnormal [Unknown]
  - Myalgia [Unknown]
  - Chills [Unknown]
  - Pain in extremity [Unknown]
